FAERS Safety Report 9658110 (Version 4)
Quarter: 2013Q4

REPORT INFORMATION
  Report Type: Spontaneous
  Country: JP (occurrence: JP)
  Receive Date: 20131030
  Receipt Date: 20131217
  Transmission Date: 20140711
  Serious: Yes (Life-Threatening, Hospitalization)
  Sender: FDA-Public Use
  Company Number: JP-ABBVIE-13P-087-1138629-00

PATIENT
  Age: 45 Year
  Sex: Female
  Weight: 45 kg

DRUGS (8)
  1. HUMIRA [Suspect]
     Indication: DISEASE PROGRESSION
     Route: 058
     Dates: start: 20110610, end: 20110610
  2. HUMIRA [Suspect]
     Indication: PROPHYLAXIS
     Dates: start: 20110624, end: 20110624
  3. HUMIRA [Suspect]
     Indication: CROHN^S DISEASE
     Dates: start: 20110708, end: 20130722
  4. PARENTERNAL NUTRITION [Concomitant]
     Indication: NUTRITIONAL SUPPLEMENTATION
  5. CIPROFLOXACIN [Concomitant]
     Indication: INFECTION
     Route: 048
     Dates: start: 20080917, end: 20130118
  6. MESALAZINE [Concomitant]
     Indication: CROHN^S DISEASE
     Route: 048
  7. BEPOTASTINE BESILATE [Concomitant]
     Indication: HYPERSENSITIVITY
     Route: 048
     Dates: start: 20110627, end: 20130809
  8. POTASSIUM L-ASPARTATE [Concomitant]
     Indication: ELECTROLYTE SUBSTITUTION THERAPY
     Route: 048

REACTIONS (3)
  - Female genital tract fistula [Not Recovered/Not Resolved]
  - Tumour fistulisation [Not Recovered/Not Resolved]
  - Gastrointestinal inflammation [Unknown]
